FAERS Safety Report 6970958-5 (Version None)
Quarter: 2010Q3

REPORT INFORMATION
  Report Type: 
  Country: None (occurrence: None)
  Receive Date: 20100908
  Receipt Date: 20100830
  Transmission Date: 20110219
  Serious: Yes (Hospitalization)
  Sender: FDA-Public Use
  Company Number: FI-ROCHE-724845

PATIENT
  Sex: Male

DRUGS (4)
  1. XELODA [Suspect]
     Indication: OESOPHAGEAL CANCER METASTATIC
     Route: 048
     Dates: start: 20100709, end: 20100805
  2. XELODA [Suspect]
     Route: 048
     Dates: end: 20100820
  3. OXALIPLATIN [Suspect]
     Indication: OESOPHAGEAL CANCER METASTATIC
     Dosage: FREQ: TWICE, LAST THERAPY RECEVIED ON  30 JULY 2010
     Route: 042
     Dates: start: 20100709
  4. EPIRUBICIN [Suspect]
     Indication: OESOPHAGEAL CANCER METASTATIC
     Dosage: FREQ: TWICE, LAST THERAPY RECEVIED ON  30 JULY 2010
     Route: 042
     Dates: start: 20100709

REACTIONS (6)
  - DEHYDRATION [None]
  - DIARRHOEA [None]
  - DYSPNOEA [None]
  - GENERAL PHYSICAL HEALTH DETERIORATION [None]
  - NEUTROPENIA [None]
  - PYREXIA [None]
